FAERS Safety Report 11922679 (Version 1)
Quarter: 2016Q1

REPORT INFORMATION
  Report Type: Report from Study
  Country: JP (occurrence: JP)
  Receive Date: 20160115
  Receipt Date: 20160115
  Transmission Date: 20160526
  Serious: Yes (Other)
  Sender: FDA-Public Use
  Company Number: JP-REGENERON PHARMACEUTICALS, INC.-2016-10179

PATIENT

DRUGS (10)
  1. CRAVIT [Concomitant]
     Active Substance: LEVOFLOXACIN
     Indication: INFECTION PROPHYLAXIS
     Dosage: UNK
     Route: 047
     Dates: start: 20150520
  2. NEOSYNESIN [PHENYLEPHRINE HYDROCHLORIDE] [Concomitant]
     Indication: MYDRIASIS
     Dosage: UNK
     Route: 047
     Dates: start: 20150520
  3. BRONUCK [Suspect]
     Active Substance: BROMFENAC SODIUM
     Indication: DIABETIC RETINAL OEDEMA
     Dosage: UNK
     Route: 047
  4. APPAMIDE PLUS [Concomitant]
     Indication: MYDRIASIS
     Dosage: UNK
     Route: 047
     Dates: start: 20150520
  5. EYLEA [Suspect]
     Active Substance: AFLIBERCEPT
     Dosage: 2 MG, ONCE, RIGHT EYE
     Route: 031
     Dates: start: 20150617, end: 20150617
  6. EYLEA [Suspect]
     Active Substance: AFLIBERCEPT
     Indication: DIABETIC RETINAL OEDEMA
     Dosage: 2 MG, ONCE, RIGHT EYE
     Route: 031
     Dates: start: 20150520, end: 20150520
  7. FLUOROMETHOLONE. [Suspect]
     Active Substance: FLUOROMETHOLONE
     Indication: PRODUCT USED FOR UNKNOWN INDICATION
     Route: 047
  8. FLOMOX [Suspect]
     Active Substance: CEFCAPENE PIVOXIL HYDROCHLORIDE HYDRATE
     Indication: PRODUCT USED FOR UNKNOWN INDICATION
     Route: 048
  9. RINDERON V [Suspect]
     Active Substance: BETAMETHASONE VALERATE
     Indication: PRODUCT USED FOR UNKNOWN INDICATION
  10. VEGAMOX [Concomitant]
     Active Substance: MOXIFLOXACIN HYDROCHLORIDE
     Indication: INFECTION PROPHYLAXIS
     Dosage: UNK
     Route: 047
     Dates: start: 20150508, end: 20150915

REACTIONS (1)
  - Lenticular injury [Recovering/Resolving]

NARRATIVE: CASE EVENT DATE: 20150617
